FAERS Safety Report 5474412-1 (Version None)
Quarter: 2007Q3

REPORT INFORMATION
  Report Type: 
  Country: None (occurrence: None)
  Receive Date: 20070904
  Receipt Date: 20061204
  Transmission Date: 20080115
  Serious: Yes (Other)
  Sender: FDA-Public Use
  Company Number: 150500USA

PATIENT
  Sex: Male
  Weight: 103.4201 kg

DRUGS (4)
  1. LISINOPRIL AND HYDROCHLOROTHIAZIDE [Suspect]
     Indication: HYPERTENSION
     Dates: start: 20061103, end: 20061203
  2. METFORMIN HCL [Suspect]
     Indication: TYPE 2 DIABETES MELLITUS
     Dates: start: 20061103, end: 20061203
  3. AMOXICILLIN [Suspect]
     Dates: start: 20061202
  4. FEXOFENADINE [Suspect]
     Dates: start: 20061202

REACTIONS (3)
  - DECREASED APPETITE [None]
  - EAR INFECTION [None]
  - SWELLING FACE [None]
